FAERS Safety Report 8154220-3 (Version None)
Quarter: 2012Q1

REPORT INFORMATION
  Report Type: 
  Country: None (occurrence: None)
  Receive Date: 20120221
  Receipt Date: 20120206
  Transmission Date: 20120608
  Serious: Yes (Other)
  Sender: FDA-Public Use
  Company Number: FR-CELGENEUS-056-21880-12020766

PATIENT
  Sex: Male

DRUGS (19)
  1. OXYCONTIN [Concomitant]
     Route: 065
     Dates: start: 20111129
  2. DEXAMETHASONE [Suspect]
     Indication: MULTIPLE MYELOMA
     Dosage: 28 MILLIGRAM
     Route: 048
     Dates: start: 20111213, end: 20120130
  3. IMOVANE [Concomitant]
     Route: 065
     Dates: start: 20111129
  4. OXYCODONE HCL [Concomitant]
     Route: 065
     Dates: start: 20111129
  5. ALBUTEROL SULFATE AUTOHALER [Concomitant]
     Route: 065
     Dates: start: 20111205
  6. BUMETANIDE [Concomitant]
     Route: 065
     Dates: start: 20111129
  7. TRANSIPEG [Concomitant]
     Route: 065
     Dates: start: 20111213
  8. POTASSIUM CHLORIDE [Concomitant]
     Route: 065
     Dates: start: 20111213
  9. TRIMETHOPRIM [Concomitant]
     Route: 065
     Dates: start: 20111110
  10. LEUCOVORIN CALCIUM [Concomitant]
     Route: 065
     Dates: start: 20111110
  11. ELOTUZUMAB [Suspect]
     Indication: MULTIPLE MYELOMA
     Dosage: 760 MILLIGRAM
     Route: 041
     Dates: start: 20111213, end: 20120131
  12. VALACYCLOVIR HYDROCHLORIDE [Concomitant]
     Route: 065
     Dates: start: 20111110
  13. DEXAMETHASONE [Suspect]
     Dosage: 8 MILLIGRAM
     Route: 041
     Dates: start: 20111213, end: 20120130
  14. LYRICA [Concomitant]
     Route: 065
     Dates: start: 20111129
  15. ECONAZOL [Concomitant]
     Route: 065
     Dates: start: 20111210
  16. PHENOXYMETHYL PENICILLIN [Concomitant]
     Route: 065
     Dates: start: 20111110
  17. DILTIAZEM HCL [Concomitant]
     Route: 065
     Dates: start: 20111129
  18. PREVISCAN [Concomitant]
     Route: 065
     Dates: start: 20111129
  19. REVLIMID [Suspect]
     Indication: MULTIPLE MYELOMA
     Dosage: 25 MILLIGRAM
     Route: 048
     Dates: start: 20111213, end: 20120130

REACTIONS (1)
  - CHRONIC LYMPHOCYTIC LEUKAEMIA [None]
